FAERS Safety Report 11565463 (Version 1)
Quarter: 2015Q3

REPORT INFORMATION
  Report Type: Spontaneous
  Country: US (occurrence: US)
  Receive Date: 20150916
  Receipt Date: 20150916
  Transmission Date: 20151125
  Serious: No
  Sender: FDA-Public Use
  Company Number: US-ELI_LILLY_AND_COMPANY-US200904006881

PATIENT
  Age: 64 Year
  Sex: Female
  Weight: 58.05 kg

DRUGS (5)
  1. SYNTHROID [Concomitant]
     Active Substance: LEVOTHYROXINE SODIUM
  2. ALEVE [Concomitant]
     Active Substance: NAPROXEN SODIUM
  3. PAXIL [Concomitant]
     Active Substance: PAROXETINE HYDROCHLORIDE
  4. CALCIUM [Concomitant]
     Active Substance: CALCIUM
  5. FORTEO [Suspect]
     Active Substance: TERIPARATIDE
     Dosage: 20 UG, DAILY (1/D)

REACTIONS (10)
  - Night sweats [Unknown]
  - Pain in jaw [Unknown]
  - Arthritis [Not Recovered/Not Resolved]
  - Weight increased [Unknown]
  - Headache [Unknown]
  - Muscle spasms [Unknown]
  - Dyspepsia [Unknown]
  - Haemorrhage [Unknown]
  - Coagulopathy [Unknown]
  - Chest discomfort [Unknown]

NARRATIVE: CASE EVENT DATE: 200904
